FAERS Safety Report 9994480 (Version 1)
Quarter: 2014Q1

REPORT INFORMATION
  Report Type: Spontaneous
  Country: US (occurrence: US)
  Receive Date: 20140311
  Receipt Date: 20140311
  Transmission Date: 20141002
  Serious: Yes (Hospitalization)
  Sender: FDA-Public Use
  Company Number: US-BIOGENIDEC-2014BI019237

PATIENT
  Age: 62 Year
  Sex: Female

DRUGS (17)
  1. TECFIDERA [Suspect]
     Indication: MULTIPLE SCLEROSIS
     Route: 048
     Dates: start: 20140217, end: 20140219
  2. AMITRIPTYLINE [Concomitant]
  3. BUPROPION [Concomitant]
  4. CALCIUM CARBONATE [Concomitant]
  5. CLONIDINE [Concomitant]
  6. CRANBERRY [Concomitant]
  7. LEVOTHYROXINE [Concomitant]
  8. LISINOPRIL [Concomitant]
  9. DILTIAZEM [Concomitant]
  10. METFORMIN [Concomitant]
  11. MORPHINE SULFATE [Concomitant]
  12. MINOXIDIL [Concomitant]
  13. STRESSTABS [Concomitant]
  14. OMEPRAZOLE [Concomitant]
  15. VITAMIN D [Concomitant]
  16. TIZANIDINE [Concomitant]
  17. VITAMINB12- FOLIC ACID [Concomitant]

REACTIONS (3)
  - Diarrhoea [Recovered/Resolved]
  - Vomiting [Recovered/Resolved]
  - Dehydration [Recovered/Resolved]
